FAERS Safety Report 7535189-9 (Version None)
Quarter: 2011Q2

REPORT INFORMATION
  Report Type: 
  Country: None (occurrence: None)
  Receive Date: 20110609
  Receipt Date: 20090224
  Transmission Date: 20111010
  Serious: Yes (Other)
  Sender: FDA-Public Use
  Company Number: PHHY2009AU07135

PATIENT
  Sex: Male
  Weight: 93 kg

DRUGS (10)
  1. DI-GESIC [Concomitant]
  2. ITRACONAZOLE [Concomitant]
  3. PREDNISOLONE [Concomitant]
  4. AMOXICILLIN [Concomitant]
  5. DICLOXACILLIN [Concomitant]
  6. ISORBIDE [Concomitant]
  7. CRESTOR [Concomitant]
  8. PHENERGAN HCL [Concomitant]
  9. HYDROXYUREA [Concomitant]
  10. EXJADE [Suspect]
     Indication: IRON METABOLISM DISORDER
     Dosage: 500 MG, QD

REACTIONS (1)
  - WHITE BLOOD CELL COUNT INCREASED [None]
